FAERS Safety Report 25940726 (Version 1)
Quarter: 2025Q4

REPORT INFORMATION
  Report Type: Spontaneous
  Country: US (occurrence: None)
  Receive Date: 20251017
  Receipt Date: 20251017
  Transmission Date: 20260118
  Serious: Yes (Death)
  Sender: FDA-CTU
  Company Number: None

PATIENT
  Sex: Male

DRUGS (10)
  1. PREDNISONE [Suspect]
     Active Substance: PREDNISONE
     Dosage: FREQUENCY : DAILY;?
     Route: 048
     Dates: start: 20250828
  2. ABIRATERONE [Concomitant]
     Active Substance: ABIRATERONE
  3. ABIRTEGA [Concomitant]
     Active Substance: ABIRATERONE ACETATE
  4. ASPIRIN [Concomitant]
     Active Substance: ASPIRIN
  5. ELIGARD [Concomitant]
     Active Substance: LEUPROLIDE ACETATE
  6. ELIOUIS [Concomitant]
  7. FUROSEMIDE [Concomitant]
     Active Substance: FUROSEMIDE
  8. LATANOPROST [Concomitant]
     Active Substance: LATANOPROST
  9. LEVETIRACETAM [Concomitant]
     Active Substance: LEVETIRACETAM
  10. METOPROLOL TARTRATE [Concomitant]
     Active Substance: METOPROLOL TARTRATE

REACTIONS (1)
  - Death [None]
